FAERS Safety Report 4885906-1 (Version None)
Quarter: 2006Q1

REPORT INFORMATION
  Report Type: 
  Country: None (occurrence: None)
  Receive Date: 20060120
  Receipt Date: 20050916
  Transmission Date: 20060701
  Serious: Yes (Other)
  Sender: FDA-Public Use
  Company Number: US-ROCHE-418146

PATIENT
  Age: 51 Year
  Sex: Female
  Weight: 69.9 kg

DRUGS (1)
  1. BONIVA [Suspect]
     Indication: OSTEOPENIA
     Route: 048
     Dates: start: 20050815, end: 20050815

REACTIONS (5)
  - DIARRHOEA [None]
  - FATIGUE [None]
  - NAUSEA [None]
  - OEDEMA PERIPHERAL [None]
  - VERTIGO [None]
